FAERS Safety Report 9821856 (Version 2)
Quarter: 2014Q2

REPORT INFORMATION
  Report Type: Spontaneous
  Country: US (occurrence: None)
  Receive Date: 20140114
  Receipt Date: 20140402
  Transmission Date: 20141212
  Serious: Yes (Other)
  Sender: FDA-Public Use
  Company Number: KAD201401-000011

PATIENT
  Sex: Male

DRUGS (5)
  1. RIBASPHERE [Suspect]
     Indication: HEPATITIS C
     Dosage: CAPSULE, TOTAL DOSE 1200 MG/DAY, 3 CAPSULES AM AND 3 CAPSULES PM
     Route: 048
     Dates: start: 20130705
  2. PEGASYS (PEGINTERFERON ALFA-2A) [Suspect]
     Indication: HEPATITIS C
     Dosage: 180 MCG, ONCE A WEEK
     Route: 058
     Dates: start: 20130705
  3. VICTRELIS [Suspect]
     Indication: HEPATITIS C
     Dosage: CAPSULE, TOTAL DOSE 2400 MG/DAY
     Route: 048
     Dates: start: 20130802, end: 20140113
  4. LOSARTAN POTASSIUM PLUS HYDROCHLOROTHIAZIDE (LOSARTAN POTASSIUM, HYDROCHLOROTHIAZIDE) [Concomitant]
  5. AMLODIPINE (AMLODIPINE) [Concomitant]

REACTIONS (6)
  - Heart rate increased [None]
  - Alopecia [None]
  - Insomnia [None]
  - Fatigue [None]
  - Alopecia [None]
  - Hypertension [None]
